FAERS Safety Report 7541401-2 (Version None)
Quarter: 2011Q2

REPORT INFORMATION
  Report Type: 
  Country: None (occurrence: None)
  Receive Date: 20110613
  Receipt Date: 20110606
  Transmission Date: 20111010
  Serious: No
  Sender: FDA-Public Use
  Company Number: US-BIOGENIDEC-2011BI004237

PATIENT
  Age: 37 Year
  Sex: Female

DRUGS (3)
  1. BETASERON [Concomitant]
     Indication: MULTIPLE SCLEROSIS
  2. TYSABRI [Suspect]
     Indication: MULTIPLE SCLEROSIS
     Route: 042
     Dates: start: 20110125
  3. COPAXONE [Concomitant]
     Indication: MULTIPLE SCLEROSIS

REACTIONS (6)
  - ABDOMINAL DISTENSION [None]
  - PAIN [None]
  - SKIN EXFOLIATION [None]
  - MIGRAINE [None]
  - NAUSEA [None]
  - HEADACHE [None]
